FAERS Safety Report 9819434 (Version 2)
Quarter: 2014Q1

REPORT INFORMATION
  Report Type: Spontaneous
  Country: US (occurrence: None)
  Receive Date: 20131223
  Receipt Date: 20140228
  Transmission Date: 20141002
  Serious: Yes (Other)
  Sender: FDA-Public Use
  Company Number: 220951

PATIENT
  Age: 64 Year
  Sex: Female

DRUGS (1)
  1. PICATO GEL [Suspect]
     Indication: ACTINIC KERATOSIS
     Dosage: (APPLY FOR 2  DAYS)
     Dates: start: 20130308, end: 20130308

REACTIONS (4)
  - Application site vesicles [None]
  - Application site pain [None]
  - Application site erythema [None]
  - Incorrect drug administration duration [None]
